FAERS Safety Report 16227336 (Version 1)
Quarter: 2019Q2

REPORT INFORMATION
  Report Type: Spontaneous
  Country: US (occurrence: US)
  Receive Date: 20190318
  Receipt Date: 20190318
  Transmission Date: 20190711
  Serious: No
  Sender: FDA-Public Use
  Company Number: None

PATIENT
  Age: 75 Year
  Sex: Female

DRUGS (1)
  1. PROLIA [Suspect]
     Active Substance: DENOSUMAB

REACTIONS (6)
  - Back pain [None]
  - Vision blurred [None]
  - Decreased appetite [None]
  - Impaired driving ability [None]
  - Asthenia [None]
  - Balance disorder [None]

NARRATIVE: CASE EVENT DATE: 20190318
